FAERS Safety Report 8350040 (Version 4)
Quarter: 2013Q2

REPORT INFORMATION
  Report Type: Spontaneous
  Country: BR (occurrence: BR)
  Receive Date: 20120124
  Receipt Date: 20130408
  Transmission Date: 20140414
  Serious: Yes (Death, Hospitalization, Other)
  Sender: FDA-Public Use
  Company Number: BR-AMGEN-BRASP2012003482

PATIENT
  Age: 59 Year
  Sex: Female
  Weight: 70 kg

DRUGS (10)
  1. ENBREL [Suspect]
     Indication: RHEUMATOID ARTHRITIS
     Dosage: 50 MG, ONCE WEEKLY
     Route: 058
     Dates: start: 201007
  2. ENBREL [Suspect]
     Dosage: 50 MG, ONCE WEEKLY
     Route: 058
     Dates: start: 201110, end: 201204
  3. PREDNISONE [Concomitant]
     Dosage: 10 MG, UNK
  4. PREDNISONE [Concomitant]
     Dosage: STRENGTH 10MG
  5. METHOTREXATE [Concomitant]
     Dosage: UNK
  6. CALCIUM [Concomitant]
     Dosage: UNK
  7. PURAN T4 [Concomitant]
     Dosage: STRENGTH 75MG
  8. OMEPRAZOL                          /00661201/ [Concomitant]
     Dosage: UNK
  9. HISTAMINE [Concomitant]
     Dosage: UNK
  10. PROTOS                             /00737201/ [Concomitant]
     Dosage: 1 DF, 2X/WEEK

REACTIONS (3)
  - Gastric cancer [Fatal]
  - Spinal fracture [Recovering/Resolving]
  - Injection site pain [Unknown]
